FAERS Safety Report 6181413-7 (Version None)
Quarter: 2009Q2

REPORT INFORMATION
  Report Type: 
  Country: None (occurrence: None)
  Receive Date: 20090505
  Receipt Date: 20090505
  Transmission Date: 20091009
  Serious: Yes (Other)
  Sender: FDA-Public Use
  Company Number: None

PATIENT
  Sex: Male
  Weight: 124.09 kg

DRUGS (8)
  1. LISINOPRIL [Suspect]
     Dosage: 5MG TABLET 10 MG QD ORAL
     Route: 048
     Dates: start: 20081224, end: 20090505
  2. ASPIRIN [Concomitant]
  3. FLUTICASONE NASAL SPRAY (FLUTICASONE NASAL SPRAY) [Concomitant]
  4. HYDROCHLOROTHIAZIDE [Concomitant]
  5. METOPROLOL TARTRATE [Concomitant]
  6. NAPROXSYN (NAPROXEN) [Concomitant]
  7. SIMVASTATIN [Concomitant]
  8. TNG (NITROGLYCERIN) [Concomitant]

REACTIONS (1)
  - COUGH [None]
